FAERS Safety Report 10570163 (Version 2)
Quarter: 2014Q4

REPORT INFORMATION
  Report Type: Spontaneous
  Country: GB (occurrence: GB)
  Receive Date: 20141107
  Receipt Date: 20141113
  Transmission Date: 20150529
  Serious: Yes (Death, Hospitalization, Other)
  Sender: FDA-Public Use
  Company Number: GB-ROCHE-1486674

PATIENT
  Sex: Male

DRUGS (2)
  1. XOLAIR [Suspect]
     Active Substance: OMALIZUMAB
     Route: 065
     Dates: start: 20140814
  2. XOLAIR [Suspect]
     Active Substance: OMALIZUMAB
     Indication: ASTHMA
     Route: 065
     Dates: start: 201403

REACTIONS (9)
  - Infection [Unknown]
  - Multi-organ failure [Fatal]
  - Nausea [Unknown]
  - Oesophageal candidiasis [Unknown]
  - General physical health deterioration [Unknown]
  - Weight decreased [Unknown]
  - Vomiting [Unknown]
  - Hypophagia [Unknown]
  - Sepsis [Fatal]
